FAERS Safety Report 15499653 (Version 3)
Quarter: 2019Q2

REPORT INFORMATION
  Report Type: Spontaneous
  Country: US (occurrence: US)
  Receive Date: 20181015
  Receipt Date: 20190524
  Transmission Date: 20190711
  Serious: Yes (Other)
  Sender: FDA-Public Use
  Company Number: US-PFIZER INC-2018411745

PATIENT
  Age: 69 Year
  Sex: Female
  Weight: 92.99 kg

DRUGS (14)
  1. PERCOCET [Concomitant]
     Active Substance: ACETAMINOPHEN\OXYCODONE HYDROCHLORIDE
     Dosage: UNK
  2. NORVASC [Concomitant]
     Active Substance: AMLODIPINE BESYLATE
     Indication: BLOOD PRESSURE ABNORMAL
     Dosage: 5 MG, DAILY
     Route: 048
  3. DOXEPIN [Concomitant]
     Active Substance: DOXEPIN
     Indication: INSOMNIA
     Dosage: 50 MG, 1X/DAY (AT BEDTIME BY MOUTH)
     Route: 048
  4. PANTOPRAZOLE [Concomitant]
     Active Substance: PANTOPRAZOLE
     Indication: GASTROOESOPHAGEAL REFLUX DISEASE
  5. LYRICA [Suspect]
     Active Substance: PREGABALIN
     Dosage: 150 MG, 3X/DAY
     Route: 048
     Dates: start: 201812
  6. LEVOTHYROXIN [Concomitant]
     Active Substance: LEVOTHYROXINE
     Indication: THYROID DISORDER
     Dosage: 100 MG, 1X/DAY
     Route: 048
  7. BUSPAR [Concomitant]
     Active Substance: BUSPIRONE HYDROCHLORIDE
     Indication: ANXIETY
     Dosage: 5 MG, 3X/DAY
     Route: 048
  8. LASIX [Concomitant]
     Active Substance: FUROSEMIDE
     Indication: PERIPHERAL SWELLING
     Dosage: 40 MG, 1X/DAY
     Route: 048
  9. LYRICA [Suspect]
     Active Substance: PREGABALIN
     Indication: ARTHRALGIA
     Dosage: 150 MG, UNK
     Dates: start: 201810
  10. TIZANIDINE. [Concomitant]
     Active Substance: TIZANIDINE
     Indication: MUSCLE RELAXANT THERAPY
     Dosage: 2 MG, 4X/DAY (ONE TABLET BY MOUTH EVERY SIX HOURS)
     Route: 048
  11. PANTOPRAZOLE [Concomitant]
     Active Substance: PANTOPRAZOLE
     Indication: GASTROINTESTINAL DISORDER
     Dosage: 40 MG, 1X/DAY (ONCE IN THE MORNING BY MOUTH)
     Route: 048
  12. LYRICA [Suspect]
     Active Substance: PREGABALIN
     Indication: PAIN
     Dosage: 100 MG, UNK
  13. TRAMADOL. [Concomitant]
     Active Substance: TRAMADOL
     Indication: VASCULAR HEADACHE
     Dosage: 50 MG, AS NEEDED
     Route: 048
  14. TOPIRAMATE. [Concomitant]
     Active Substance: TOPIRAMATE
     Indication: SEIZURE
     Dosage: 200 MG, 2X/DAY
     Route: 048

REACTIONS (12)
  - Cerebrovascular accident [Unknown]
  - Fall [Unknown]
  - Upper limb fracture [Unknown]
  - Craniocerebral injury [Unknown]
  - Seizure [Unknown]
  - Pain [Unknown]
  - Paresis [Unknown]
  - Vascular headache [Unknown]
  - Arthropathy [Unknown]
  - Dyskinesia [Unknown]
  - Headache [Unknown]
  - Foot fracture [Not Recovered/Not Resolved]
